FAERS Safety Report 8756643 (Version 2)
Quarter: 2013Q1

REPORT INFORMATION
  Report Type: Spontaneous
  Country: US (occurrence: US)
  Receive Date: 20120828
  Receipt Date: 20130130
  Transmission Date: 20140127
  Serious: No
  Sender: FDA-Public Use
  Company Number: US-B.I. PHARMACEUTICALS,INC./RIDGEFIELD-2012-BP-20261BP

PATIENT
  Sex: Female

DRUGS (7)
  1. PRADAXA [Suspect]
     Indication: ATRIAL FIBRILLATION
     Dosage: 300 MG
     Route: 048
     Dates: start: 201205
  2. METOPROLOL [Concomitant]
     Indication: HYPERTENSION
     Dosage: 50 MG
     Route: 048
  3. LIPITOR [Concomitant]
     Indication: BLOOD CHOLESTEROL INCREASED
     Dosage: 40 MG
     Route: 048
  4. ZETIA [Concomitant]
     Dosage: 10 MG
     Route: 048
  5. ALTACE [Concomitant]
     Dosage: 5 MG
     Route: 048
  6. ECOTRIN [Concomitant]
     Dosage: 81 MG
     Route: 048
  7. DIGOXIN [Concomitant]
     Dosage: 125 MCG
     Route: 048

REACTIONS (10)
  - Lethargy [Not Recovered/Not Resolved]
  - Arthralgia [Not Recovered/Not Resolved]
  - Local swelling [Not Recovered/Not Resolved]
  - Myalgia [Not Recovered/Not Resolved]
  - Apathy [Not Recovered/Not Resolved]
  - Local swelling [Unknown]
  - Constipation [Unknown]
  - Lethargy [Unknown]
  - Erythema [Unknown]
  - Skin warm [Unknown]
